FAERS Safety Report 18518120 (Version 2)
Quarter: 2020Q4

REPORT INFORMATION
  Report Type: Spontaneous
  Country: US (occurrence: US)
  Receive Date: 20201118
  Receipt Date: 20201119
  Transmission Date: 20210114
  Serious: No
  Sender: FDA-Public Use
  Company Number: US-PFIZER INC-2020451561

PATIENT
  Age: 31 Year
  Sex: Female

DRUGS (1)
  1. TALAZOPARIB. [Suspect]
     Active Substance: TALAZOPARIB
     Indication: BREAST CANCER FEMALE
     Dosage: UNK
     Dates: start: 202003, end: 202007

REACTIONS (1)
  - Neoplasm recurrence [Unknown]
